FAERS Safety Report 18343898 (Version 2)
Quarter: 2020Q4

REPORT INFORMATION
  Report Type: Spontaneous
  Country: US (occurrence: US)
  Receive Date: 20201005
  Receipt Date: 20201005
  Transmission Date: 20210114
  Serious: No
  Sender: FDA-Public Use
  Company Number: US-MORTON GROVE PHARMACEUTICALS, INC.-2092407

PATIENT
  Sex: Female

DRUGS (5)
  1. FLUTICASONE PROPIONATE NASAL SPRAY USP, 50 MCG/SPRAY [Suspect]
     Active Substance: FLUTICASONE PROPIONATE
     Indication: CHEST DISCOMFORT
     Route: 045
     Dates: start: 201709
  2. LISINOPRIL. [Concomitant]
     Active Substance: LISINOPRIL
  3. DILTIAZEM. [Concomitant]
     Active Substance: DILTIAZEM
  4. METOPROLOL. [Concomitant]
     Active Substance: METOPROLOL
  5. ATORVASTATIN [Concomitant]
     Active Substance: ATORVASTATIN

REACTIONS (1)
  - Tinnitus [Not Recovered/Not Resolved]

NARRATIVE: CASE EVENT DATE: 20200924
